FAERS Safety Report 9644672 (Version 5)
Quarter: 2016Q4

REPORT INFORMATION
  Report Type: Report from Study
  Country: FR (occurrence: FR)
  Receive Date: 20131025
  Receipt Date: 20161116
  Transmission Date: 20170207
  Serious: Yes (Hospitalization, Other)
  Sender: FDA-Public Use
  Company Number: FR-JNJFOC-20131012358

PATIENT
  Age: 51 Year
  Sex: Male
  Weight: 88 kg

DRUGS (24)
  1. PROCORALAN [Concomitant]
     Active Substance: IVABRADINE
     Dosage: 1 TABLET MORNING AND EVENING
     Route: 065
  2. PLAVIX [Concomitant]
     Active Substance: CLOPIDOGREL BISULFATE
     Dosage: 75 (UNITS UNSPECIFIED) 1 TABLET MIDDAY
     Route: 065
  3. ATENOLOL. [Concomitant]
     Active Substance: ATENOLOL
     Dosage: 100 (UNITS UNSPECIFIED) 1 TABLET IN THE MORNING
     Route: 065
  4. NIDREL [Concomitant]
     Active Substance: NITRENDIPINE
     Dosage: 20 (UNITS UNSPECIFIED) 1 TABLET IN THE MORNING
     Route: 065
  5. COTAREG (VALSARTAN, HYDROCHLORTHIAZIDE) [Concomitant]
     Active Substance: HYDROCHLOROTHIAZIDE\VALSARTAN
     Dosage: 160/12.5 (UNITS UNSPECIFIED) 1 TABLET IN THE MORNING
     Route: 065
  6. REMICADE [Suspect]
     Active Substance: INFLIXIMAB
     Indication: ENTEROCOLITIS HAEMORRHAGIC
     Route: 042
     Dates: start: 20110727
  7. DIAMICRON [Concomitant]
     Active Substance: GLICLAZIDE
     Dosage: 30 (UNITS UNSPECIFIED) 1 TABLET MORNING AND EVENING
     Route: 065
  8. CYMBALTA [Concomitant]
     Active Substance: DULOXETINE HYDROCHLORIDE
     Dosage: 1 TABLET IN THE MORNING
     Route: 065
  9. TRAMADOL. [Concomitant]
     Active Substance: TRAMADOL
     Dosage: 50 (UNITS UNSPECIFIED) 1 TABLET 3 TIMES DAILY IF NEEDED
     Route: 065
  10. REMICADE [Suspect]
     Active Substance: INFLIXIMAB
     Indication: COLITIS ULCERATIVE
     Route: 042
     Dates: start: 2009
  11. PENTASA [Concomitant]
     Active Substance: MESALAMINE
     Dosage: MORNING AND EVENING
     Route: 065
  12. PARACETAMOL [Concomitant]
     Active Substance: ACETAMINOPHEN
     Route: 065
  13. NOVORAPID [Concomitant]
     Active Substance: INSULIN ASPART
     Dosage: 22 UNIT SIN MORNING, 10 UNITS MIDDAY, AND 26 UNITS IN THE EVENING.
     Route: 065
  14. REMICADE [Suspect]
     Active Substance: INFLIXIMAB
     Indication: ENTEROCOLITIS HAEMORRHAGIC
     Route: 042
     Dates: start: 20080528
  15. REMICADE [Suspect]
     Active Substance: INFLIXIMAB
     Indication: COLITIS ULCERATIVE
     Route: 042
     Dates: start: 20110727
  16. HYDROCORTISONE. [Concomitant]
     Active Substance: HYDROCORTISONE
     Indication: PREMEDICATION
     Route: 065
  17. KARDEGIC [Concomitant]
     Active Substance: ASPIRIN LYSINE
     Indication: PLATELET AGGREGATION INHIBITION
     Dosage: 75 (UNITS UNSPECIFIED) 1 SACHET MIDDAY
     Route: 065
  18. OMEPRAZOLE. [Concomitant]
     Active Substance: OMEPRAZOLE
     Dosage: 20 (UNITS UNSPECIFIED) 1 TABLET IN THE EVENING
     Route: 065
  19. EZETIMIBE. [Concomitant]
     Active Substance: EZETIMIBE
     Dosage: 10 (UNITS UNSPECIFIED) 1 TABLET IN THE EVENING
     Route: 065
  20. CRESTOR [Concomitant]
     Active Substance: ROSUVASTATIN CALCIUM
     Dosage: 10 (UNITS UNSPECIFIED) 1 TABLET IN THE EVENING
     Route: 065
  21. OMACOR [Concomitant]
     Active Substance: OMEGA-3-ACID ETHYL ESTERS
     Dosage: 1 TABLET DAILY
     Route: 065
  22. REMICADE [Suspect]
     Active Substance: INFLIXIMAB
     Indication: ENTEROCOLITIS HAEMORRHAGIC
     Route: 042
     Dates: start: 2009
  23. REMICADE [Suspect]
     Active Substance: INFLIXIMAB
     Indication: COLITIS ULCERATIVE
     Route: 042
     Dates: start: 20080528
  24. LANTUS [Concomitant]
     Active Substance: INSULIN GLARGINE
     Dosage: 40 UNITS IN THE MORNING AND 64 UNITS IN THE EVENING
     Route: 065

REACTIONS (1)
  - Periarthritis [Recovered/Resolved]

NARRATIVE: CASE EVENT DATE: 20110829
